FAERS Safety Report 19064438 (Version 1)
Quarter: 2021Q1

REPORT INFORMATION
  Report Type: Spontaneous
  Country: US (occurrence: US)
  Receive Date: 20210326
  Receipt Date: 20210326
  Transmission Date: 20210420
  Serious: Yes (Other)
  Sender: FDA-Public Use
  Company Number: US-GLAXOSMITHKLINE-USCH2021013484

PATIENT

DRUGS (1)
  1. CHAPSTICK (AVOBEN+DIMETH+HOMO+OCTINO+OCTIS+OXYBEN) [Suspect]
     Active Substance: AVOBENZONE\DIMETHICONE\HOMOSALATE\OCTINOXATE\OCTISALATE\OXYBENZONE
     Indication: PRODUCT USED FOR UNKNOWN INDICATION

REACTIONS (3)
  - Dependence [Unknown]
  - Wrong technique in product usage process [Unknown]
  - Product complaint [Unknown]
